FAERS Safety Report 7584984-9 (Version None)
Quarter: 2011Q2

REPORT INFORMATION
  Report Type: 
  Country: None (occurrence: None)
  Receive Date: 20110630
  Receipt Date: 20110624
  Transmission Date: 20111010
  Serious: Yes (Other)
  Sender: FDA-Public Use
  Company Number: GR-AMGEN-KDC423529

PATIENT
  Age: 70 Year
  Sex: Male

DRUGS (3)
  1. DENOSUMAB [Suspect]
     Indication: PROSTATE CANCER
     Dosage: UNK UNK, Q4WK
     Route: 058
     Dates: start: 20100317, end: 20100708
  2. MEDROL [Concomitant]
     Dosage: 8 MG, UNK
     Dates: start: 20100211, end: 20100705
  3. TAXOTERE [Concomitant]
     Dosage: UNK
     Dates: start: 20100418, end: 20100511

REACTIONS (1)
  - OSTEONECROSIS OF JAW [None]
